FAERS Safety Report 24346692 (Version 2)
Quarter: 2024Q4

REPORT INFORMATION
  Report Type: Spontaneous
  Country: GB (occurrence: GB)
  Receive Date: 20240921
  Receipt Date: 20241029
  Transmission Date: 20250114
  Serious: Yes (Death, Other)
  Sender: ACCORD
  Company Number: None

PATIENT
  Age: 62 Year
  Sex: Male

DRUGS (2)
  1. FINASTERIDE [Suspect]
     Active Substance: FINASTERIDE
     Indication: Gender dysphoria
     Dates: start: 2023
  2. ESTROGEN W/TESTOSTERONE [Concomitant]
     Route: 061
     Dates: start: 2023

REACTIONS (1)
  - Completed suicide [Fatal]

NARRATIVE: CASE EVENT DATE: 20230910
